FAERS Safety Report 17990632 (Version 1)
Quarter: 2020Q3

REPORT INFORMATION
  Report Type: Spontaneous
  Country: CA (occurrence: CA)
  Receive Date: 20200707
  Receipt Date: 20200707
  Transmission Date: 20201103
  Serious: Yes (Hospitalization)
  Sender: FDA-Public Use
  Company Number: CA-TEVA-2020-CA-1796827

PATIENT
  Sex: Female

DRUGS (3)
  1. CYCLOPHOSPHAMIDE. [Suspect]
     Active Substance: CYCLOPHOSPHAMIDE
     Route: 042
  2. DOXORUBICIN HYDROCHLORIDE INJECTION [Suspect]
     Active Substance: DOXORUBICIN HYDROCHLORIDE
     Route: 042
  3. VINCRISTINE SULFATE INJECTION USP [Suspect]
     Active Substance: VINCRISTINE SULFATE
     Route: 042

REACTIONS (1)
  - Febrile neutropenia [Unknown]
